FAERS Safety Report 20481499 (Version 1)
Quarter: 2022Q1

REPORT INFORMATION
  Report Type: Spontaneous
  Country: AT (occurrence: AT)
  Receive Date: 20220216
  Receipt Date: 20220216
  Transmission Date: 20220423
  Serious: Yes (Hospitalization, Other)
  Sender: FDA-Public Use
  Company Number: AT-GYP-001023

PATIENT
  Age: 25 Year
  Sex: Male

DRUGS (9)
  1. PREDNISONE [Suspect]
     Active Substance: PREDNISONE
     Indication: Acute graft versus host disease in skin
     Route: 065
  2. TRIMETHOPRIM [Suspect]
     Active Substance: TRIMETHOPRIM
     Indication: Chronic graft versus host disease
     Dosage: SPLIT OVER TWO DOSES,
     Route: 065
  3. AMBISOME [Suspect]
     Active Substance: AMPHOTERICIN B
     Indication: Chronic graft versus host disease
     Route: 065
  4. VALGANCICLOVIR [Suspect]
     Active Substance: VALGANCICLOVIR
     Indication: Chronic graft versus host disease
     Dosage: SPLIT OVER TWO DOSES,
  5. METHYLPREDNISOLONE [Suspect]
     Active Substance: METHYLPREDNISOLONE
     Indication: Chronic graft versus host disease
  6. PIMECROLIMUS [Suspect]
     Active Substance: PIMECROLIMUS
     Indication: Chronic graft versus host disease
     Route: 065
  7. PREDNISONE [Suspect]
     Active Substance: PREDNISONE
     Indication: Chronic graft versus host disease
     Route: 065
  8. PREDNISONE [Suspect]
     Active Substance: PREDNISONE
     Indication: Chronic graft versus host disease
     Dosage: TAPERED TO 1 MG/KG/DAY
     Route: 065
  9. PREDNISONE [Suspect]
     Active Substance: PREDNISONE
     Indication: Chronic graft versus host disease
     Route: 065

REACTIONS (4)
  - COVID-19 [Recovered/Resolved]
  - Therapeutic product effect incomplete [Unknown]
  - Epstein-Barr virus associated lymphoproliferative disorder [Unknown]
  - Product use in unapproved indication [Unknown]
